FAERS Safety Report 7389484-7 (Version None)
Quarter: 2011Q2

REPORT INFORMATION
  Report Type: 
  Country: None (occurrence: None)
  Receive Date: 20110401
  Receipt Date: 20110328
  Transmission Date: 20111010
  Serious: Yes (Death, Other)
  Sender: FDA-Public Use
  Company Number: NL-BAYER-201021489GPV

PATIENT
  Age: 70 Year
  Sex: Male

DRUGS (2)
  1. ANTITHROMBOTIC AGENTS [Suspect]
     Indication: ATRIAL FIBRILLATION
  2. SORAFENIB [Suspect]
     Indication: HEPATIC NEOPLASM MALIGNANT
     Dosage: 600 MG
     Route: 048

REACTIONS (5)
  - NEOPLASM MALIGNANT [None]
  - SKIN TOXICITY [None]
  - HYPOTHYROIDISM [None]
  - THYROIDITIS [None]
  - ATRIAL FIBRILLATION [None]
